FAERS Safety Report 11735308 (Version 1)
Quarter: 2015Q4

REPORT INFORMATION
  Report Type: Spontaneous
  Country: FR (occurrence: FR)
  Receive Date: 20151113
  Receipt Date: 20151113
  Transmission Date: 20160304
  Serious: Yes (Other)
  Sender: FDA-Public Use
  Company Number: FR-TEVA-606602ISR

PATIENT
  Sex: Male

DRUGS (1)
  1. ACTIQ [Suspect]
     Active Substance: FENTANYL CITRATE
     Indication: PRODUCT USED FOR UNKNOWN INDICATION
     Dosage: ACTIQ 200 MCG AND ACTIQ 400 MCG UP TO 15 LOZENGES DAILY SICE SEVERAL YEARS
     Route: 065

REACTIONS (2)
  - Intentional product use issue [Unknown]
  - Rebound psychosis [Recovered/Resolved]
